FAERS Safety Report 23601889 (Version 1)
Quarter: 2024Q1

REPORT INFORMATION
  Report Type: Spontaneous
  Country: US (occurrence: None)
  Receive Date: 20240306
  Receipt Date: 20240306
  Transmission Date: 20240410
  Serious: Yes (Life-Threatening, Disabling)
  Sender: FDA-Public Use
  Company Number: None

PATIENT
  Age: 57 Year
  Sex: Male
  Weight: 99 kg

DRUGS (1)
  1. DIHYDROXYACETONE [Suspect]
     Active Substance: DIHYDROXYACETONE
     Indication: Prophylaxis against solar radiation
     Route: 061

REACTIONS (4)
  - Urticaria [None]
  - Swelling face [None]
  - Application site reaction [None]
  - Drug hypersensitivity [None]

NARRATIVE: CASE EVENT DATE: 20240217
